FAERS Safety Report 14686014 (Version 1)
Quarter: 2018Q1

REPORT INFORMATION
  Report Type: Spontaneous
  Country: US (occurrence: US)
  Receive Date: 20180327
  Receipt Date: 20180327
  Transmission Date: 20180509
  Serious: No
  Sender: FDA-Public Use
  Company Number: US-PFIZER INC-2018122421

PATIENT
  Age: 65 Year
  Sex: Female

DRUGS (6)
  1. AXITINIB [Concomitant]
     Active Substance: AXITINIB
     Dosage: 5 MG, TWICE DAILY
     Route: 048
     Dates: start: 20171024, end: 20171031
  2. PEMBROLIZUMAB. [Concomitant]
     Active Substance: PEMBROLIZUMAB
     Indication: RENAL CELL CARCINOMA
     Dosage: 200 MG, Q3W
     Route: 042
     Dates: start: 20171003, end: 20171003
  3. PEMBROLIZUMAB. [Concomitant]
     Active Substance: PEMBROLIZUMAB
     Dosage: 200 MG, Q3W
     Route: 042
     Dates: start: 20171024, end: 20171024
  4. AXITINIB [Concomitant]
     Active Substance: AXITINIB
     Indication: RENAL CELL CARCINOMA
     Dosage: 5 MG, TWICE DAILY
     Route: 048
     Dates: start: 20171003, end: 20171023
  5. HYDROCORTISONE. [Suspect]
     Active Substance: HYDROCORTISONE
     Dosage: UNK
  6. PYRIDOSTIGMINE [Suspect]
     Active Substance: PYRIDOSTIGMINE
     Dosage: 300 MG, THRICE DAILY

REACTIONS (1)
  - Drug ineffective [Unknown]
